FAERS Safety Report 9000968 (Version 1)
Quarter: 2013Q1

REPORT INFORMATION
  Report Type: Spontaneous
  Country: US (occurrence: None)
  Receive Date: 20130103
  Receipt Date: 20130103
  Transmission Date: 20140127
  Serious: Yes (Hospitalization)
  Sender: FDA-Public Use
  Company Number: None

PATIENT
  Age: 15 Year
  Sex: Female

DRUGS (1)
  1. EXJADE  500MG  NOVARTIS [Suspect]
     Indication: HAEMOCHROMATOSIS
     Dosage: 1000MG   ONCE A DAY   PO
     Route: 048

REACTIONS (2)
  - Creatinine renal clearance increased [None]
  - Electrolyte imbalance [None]
